FAERS Safety Report 6489591-7 (Version None)
Quarter: 2009Q4

REPORT INFORMATION
  Report Type: 
  Country: None (occurrence: None)
  Receive Date: 20091207
  Receipt Date: 20091124
  Transmission Date: 20100525
  Serious: Yes (Hospitalization)
  Sender: FDA-Public Use
  Company Number: 20097593

PATIENT
  Sex: Female

DRUGS (1)
  1. LIORESAL [Suspect]
     Indication: MUSCLE SPASTICITY
     Dosage: 108-97 MCG, DAILY, INTRATHECAL
     Route: 037

REACTIONS (9)
  - ASTHENIA [None]
  - DECREASED APPETITE [None]
  - DEHYDRATION [None]
  - HYPOTONIA [None]
  - NAUSEA [None]
  - SOMNOLENCE [None]
  - URINARY TRACT INFECTION [None]
  - VERTIGO POSITIONAL [None]
  - VOMITING [None]
